FAERS Safety Report 19813950 (Version 2)
Quarter: 2021Q4

REPORT INFORMATION
  Report Type: Spontaneous
  Country: IL (occurrence: IL)
  Receive Date: 20210910
  Receipt Date: 20211025
  Transmission Date: 20220303
  Serious: Yes (Hospitalization, Other)
  Sender: FDA-Public Use
  Company Number: IL-UCBSA-2021011922

PATIENT
  Age: 33 Year
  Sex: Female

DRUGS (5)
  1. CIMZIA [Suspect]
     Active Substance: CERTOLIZUMAB PEGOL
     Indication: Ankylosing spondylitis
     Dosage: 400 MILLIGRAM
     Dates: start: 202103, end: 2021
  2. CIMZIA [Suspect]
     Active Substance: CERTOLIZUMAB PEGOL
     Dosage: 200 MILLIGRAM, EV 2 WEEKS(QOW)
     Dates: start: 202103, end: 202107
  3. BUTRANS [Concomitant]
     Active Substance: BUPRENORPHINE
     Indication: Neuralgia
     Dosage: UNK
  4. AMITRIPTYLINE [Concomitant]
     Active Substance: AMITRIPTYLINE
     Indication: Fibromyalgia
  5. AMITRIPTYLINE [Concomitant]
     Active Substance: AMITRIPTYLINE
     Indication: Migraine

REACTIONS (7)
  - Dizziness [Recovered/Resolved]
  - Syncope [Recovered/Resolved]
  - Multiple sclerosis [Unknown]
  - Neuralgia [Not Recovered/Not Resolved]
  - Abdominal pain [Unknown]
  - Diplopia [Not Recovered/Not Resolved]
  - Drug ineffective [Unknown]

NARRATIVE: CASE EVENT DATE: 20210101
